FAERS Safety Report 21581687 (Version 1)
Quarter: 2022Q4

REPORT INFORMATION
  Report Type: Spontaneous
  Country: US (occurrence: US)
  Receive Date: 20221111
  Receipt Date: 20221111
  Transmission Date: 20230113
  Serious: Yes (Hospitalization, Other)
  Sender: FDA-Public Use
  Company Number: US-ALKEM LABORATORIES LIMITED-US-ALKEM-2022-12149

PATIENT
  Age: 4 Month
  Sex: Male

DRUGS (4)
  1. SIROLIMUS [Suspect]
     Active Substance: SIROLIMUS
     Indication: Angiosarcoma
     Dosage: 0.05 MILLIGRAM/KILOGRAM, BID (WITH A  TROUGH GOAL OF 8 TO 15 NG/ML.)
     Route: 065
  2. SIROLIMUS [Suspect]
     Active Substance: SIROLIMUS
     Indication: Haemangioma-thrombocytopenia syndrome
  3. PREDNISOLONE [Concomitant]
     Active Substance: PREDNISOLONE
     Indication: Angiosarcoma
     Dosage: 2 MILLIGRAM/KILOGRAM, QD (TAPERED)
     Route: 065
  4. PREDNISOLONE [Concomitant]
     Active Substance: PREDNISOLONE
     Indication: Haemangioma-thrombocytopenia syndrome
     Dosage: UNK
     Route: 065

REACTIONS (2)
  - Pneumocystis jirovecii pneumonia [Recovering/Resolving]
  - Respiratory failure [Recovering/Resolving]
